FAERS Safety Report 18183419 (Version 1)
Quarter: 2020Q3

REPORT INFORMATION
  Report Type: Spontaneous
  Country: FR (occurrence: FR)
  Receive Date: 20200822
  Receipt Date: 20200822
  Transmission Date: 20201103
  Serious: Yes (Hospitalization)
  Sender: FDA-Public Use
  Company Number: NVSC2020FR230208

PATIENT
  Age: 66 Year
  Sex: Male
  Weight: 108 kg

DRUGS (1)
  1. TAFINLAR [Suspect]
     Active Substance: DABRAFENIB MESYLATE
     Indication: METASTATIC MALIGNANT MELANOMA
     Dosage: 300 MG
     Route: 048
     Dates: start: 20200404, end: 20200518

REACTIONS (4)
  - Vomiting [Recovered/Resolved]
  - Pyrexia [Recovering/Resolving]
  - Nausea [Recovered/Resolved]
  - Vertigo [Unknown]

NARRATIVE: CASE EVENT DATE: 20200515
